FAERS Safety Report 20986384 (Version 1)
Quarter: 2022Q2

REPORT INFORMATION
  Report Type: Spontaneous
  Country: US (occurrence: US)
  Receive Date: 20220621
  Receipt Date: 20220621
  Transmission Date: 20220721
  Serious: Yes (Other)
  Sender: FDA-Public Use
  Company Number: US-JNJFOC-20220625405

PATIENT
  Age: 13 Year
  Sex: Male

DRUGS (2)
  1. RISPERDAL [Suspect]
     Active Substance: RISPERIDONE
     Indication: Major depression
     Dosage: 1 MG IN THE MORNING AND 1.5 MG IN THE BEDTIME.
     Route: 048
  2. ZYPREXA [Suspect]
     Active Substance: OLANZAPINE
     Indication: Hallucination
     Dosage: VARYING DOSE OF 7.5 MG EVERY DAY OR 5 MG TWICE DAILY OR 2.5 MG BEDTIME.
     Route: 048

REACTIONS (2)
  - Hallucination, auditory [Recovered/Resolved]
  - Weight increased [Unknown]

NARRATIVE: CASE EVENT DATE: 19990401
